FAERS Safety Report 8525956-7 (Version None)
Quarter: 2012Q3

REPORT INFORMATION
  Report Type: 
  Country: None (occurrence: None)
  Receive Date: 20120720
  Receipt Date: 20120718
  Transmission Date: 20120928
  Serious: No
  Sender: FDA-Public Use
  Company Number: US-PFIZER INC-2012174122

PATIENT
  Sex: Male
  Weight: 72.562 kg

DRUGS (8)
  1. CARDIZEM LA [Concomitant]
     Indication: HYPERTENSION
     Dosage: 360 MG, DAILY
  2. PLAVIX [Concomitant]
     Dosage: 75 MG, DAILY
  3. CHANTIX [Suspect]
     Indication: SMOKING CESSATION THERAPY
     Dosage: 0.5 MG, 1X/DAY
     Route: 048
     Dates: start: 20101001, end: 20100101
  4. CRESTOR [Concomitant]
     Indication: ARTERIOSCLEROSIS
     Dosage: 10 MG, DAILY
  5. ENALAPRIL [Concomitant]
     Indication: FLUID RETENTION
     Dosage: 20 MG, 2X/DAY
  6. CHANTIX [Suspect]
     Dosage: 1 MG, 2X/DAY
     Route: 048
     Dates: start: 20100101, end: 20100101
  7. HYDROCHLOROTHIAZIDE [Concomitant]
     Indication: FLUID RETENTION
     Dosage: 25 MG, DAILY
  8. PROTONIX [Concomitant]
     Indication: DYSPEPSIA
     Dosage: 40 MG, 2X/DAY

REACTIONS (2)
  - ABNORMAL DREAMS [None]
  - FEELING ABNORMAL [None]
